FAERS Safety Report 7328735-1 (Version None)
Quarter: 2011Q1

REPORT INFORMATION
  Report Type: 
  Country: None (occurrence: None)
  Receive Date: 20110225
  Receipt Date: 20110225
  Transmission Date: 20110831
  Serious: No
  Sender: FDA-Public Use
  Company Number: None

PATIENT
  Age: 40 Year
  Sex: Female
  Weight: 77.1115 kg

DRUGS (1)
  1. RANITIDINE [Suspect]
     Indication: DYSPEPSIA
     Dosage: 2X A DAY
     Dates: start: 20110208, end: 20110219

REACTIONS (4)
  - HAEMORRHAGE [None]
  - CHEST DISCOMFORT [None]
  - CHROMATURIA [None]
  - PRURITUS [None]
